FAERS Safety Report 10223255 (Version 1)
Quarter: 2014Q2

REPORT INFORMATION
  Report Type: Spontaneous
  Country: FR (occurrence: FR)
  Receive Date: 20140609
  Receipt Date: 20140609
  Transmission Date: 20141212
  Serious: Yes (Death)
  Sender: FDA-Public Use
  Company Number: FR-BRISTOL-MYERS SQUIBB COMPANY-20951802

PATIENT
  Age: 62 Year
  Sex: Female

DRUGS (3)
  1. GLUCOPHAGE TABS 1000 MG [Suspect]
     Route: 048
     Dates: end: 20140320
  2. PREVISCAN [Concomitant]
     Indication: PHLEBITIS
  3. COAPROVEL [Concomitant]

REACTIONS (2)
  - Cardiac arrest [Fatal]
  - Lactic acidosis [Fatal]
